FAERS Safety Report 14120521 (Version 1)
Quarter: 2017Q4

REPORT INFORMATION
  Report Type: Spontaneous
  Country: AT (occurrence: AT)
  Receive Date: 20171024
  Receipt Date: 20171024
  Transmission Date: 20180321
  Serious: Yes (Death, Other)
  Sender: FDA-Public Use
  Company Number: AT-BAYER-2017-198153

PATIENT
  Age: 64 Year
  Sex: Male

DRUGS (7)
  1. HEPARIN [Interacting]
     Active Substance: HEPARIN SODIUM
     Indication: ACUTE MYOCARDIAL INFARCTION
  2. NOREPINEPHRINE. [Concomitant]
     Active Substance: NOREPINEPHRINE
     Dosage: (1 MCGJKG PER MINUTE)
  3. VASOPRESSIN. [Concomitant]
     Active Substance: VASOPRESSIN
  4. CLOPIDOGREL [Interacting]
     Active Substance: CLOPIDOGREL BISULFATE
     Indication: ACUTE MYOCARDIAL INFARCTION
  5. DOBUTAMINE [Concomitant]
     Active Substance: DOBUTAMINE\DOBUTAMINE HYDROCHLORIDE
     Dosage: (10 MCG/KG PER MINUTE)
  6. LEVOSIMENDAN [Concomitant]
     Active Substance: LEVOSIMENDAN
  7. ACETYLSALICYLIC ACID({=100 MG) [Suspect]
     Active Substance: ASPIRIN
     Indication: ACUTE MYOCARDIAL INFARCTION

REACTIONS (5)
  - Pharyngeal haemorrhage [None]
  - Labelled drug-drug interaction medication error [None]
  - Fungal sepsis [Fatal]
  - Procedural haemorrhage [None]
  - Drug administration error [None]
